FAERS Safety Report 9705611 (Version 1)
Quarter: 2013Q4

REPORT INFORMATION
  Report Type: Spontaneous
  Country: US (occurrence: US)
  Receive Date: 20131122
  Receipt Date: 20131122
  Transmission Date: 20140711
  Serious: No
  Sender: FDA-Public Use
  Company Number: US-GILEAD-2008-0017212

PATIENT
  Sex: Female
  Weight: 63.5 kg

DRUGS (7)
  1. LETAIRIS [Suspect]
     Indication: PULMONARY ARTERIAL HYPERTENSION
     Route: 048
     Dates: start: 20080208
  2. REVATIO [Concomitant]
     Route: 048
  3. LASIX [Concomitant]
     Route: 048
  4. ALLOPURINOL [Concomitant]
     Route: 048
  5. CLARITIN [Concomitant]
     Route: 048
  6. TYLENOL [Concomitant]
     Route: 048
  7. OXYGEN [Concomitant]
     Dosage: CONTINUOUS
     Route: 045

REACTIONS (1)
  - Contusion [None]
